FAERS Safety Report 24749620 (Version 1)
Quarter: 2024Q4

REPORT INFORMATION
  Report Type: Spontaneous
  Country: CH (occurrence: CH)
  Receive Date: 20241218
  Receipt Date: 20241218
  Transmission Date: 20250115
  Serious: Yes (Hospitalization, Other)
  Sender: KYOWA
  Company Number: CH-KYOWAKIRIN-2024KK028141

PATIENT

DRUGS (6)
  1. POTELIGEO [Suspect]
     Active Substance: MOGAMULIZUMAB-KPKC
     Indication: Cutaneous T-cell lymphoma stage II
     Dosage: 100 MG,  6 DOSES
     Route: 040
     Dates: start: 20240219, end: 20240415
  2. POTELIGEO [Suspect]
     Active Substance: MOGAMULIZUMAB-KPKC
     Dosage: 100 MG THE PATIENT HAD ALREADY RECEIVED 5 DOSES BETWEEN 29-JUN-2023 AND 14- AUG-2023
     Route: 040
  3. CARVEDILOL [Concomitant]
     Active Substance: CARVEDILOL
     Indication: Hypertension
     Dosage: UNK, LONG TERM TREATMENT
     Route: 048
  4. OLMESARTAN MEDOXOMIL [Concomitant]
     Active Substance: OLMESARTAN MEDOXOMIL
     Indication: Hypertension
     Dosage: UNK, LONG TERM TREATMENT
     Route: 048
  5. CALCIUM CARBONATE\CHOLECALCIFEROL [Concomitant]
     Active Substance: CALCIUM CARBONATE\CHOLECALCIFEROL
     Indication: Product used for unknown indication
     Dosage: UNK, LONG TERM TREATMENT
     Route: 048
  6. NEOTIGASON [Concomitant]
     Active Substance: ACITRETIN
     Indication: Cutaneous T-cell lymphoma stage II
     Dosage: UNK, LONG TERM TREATMENT
     Route: 048

REACTIONS (1)
  - Heart failure with reduced ejection fraction [Not Recovered/Not Resolved]

NARRATIVE: CASE EVENT DATE: 20240401
